FAERS Safety Report 4367694-0 (Version None)
Quarter: 2004Q2

REPORT INFORMATION
  Report Type: 
  Country: None (occurrence: None)
  Receive Date: 20040526
  Receipt Date: 20031015
  Transmission Date: 20050107
  Serious: Yes (Hospitalization)
  Sender: FDA-Public Use
  Company Number: USA030947719

PATIENT
  Age: 13 Year
  Sex: Male
  Weight: 72 kg

DRUGS (2)
  1. STRATTERA [Suspect]
     Indication: ATTENTION DEFICIT/HYPERACTIVITY DISORDER
     Dosage: 80 MG/2 DAY
     Dates: start: 20030301
  2. ZYPREXA [Suspect]
     Indication: MOOD SWINGS
     Dosage: 5 MG/DAY
     Dates: start: 20030312

REACTIONS (5)
  - ABNORMAL BEHAVIOUR [None]
  - DRUG EFFECT DECREASED [None]
  - PRESCRIBED OVERDOSE [None]
  - PSYCHOMOTOR HYPERACTIVITY [None]
  - WEIGHT INCREASED [None]
